FAERS Safety Report 5368901-8 (Version None)
Quarter: 2007Q2

REPORT INFORMATION
  Report Type: 
  Country: None (occurrence: None)
  Receive Date: 20070625
  Receipt Date: 20061101
  Transmission Date: 20071010
  Serious: No
  Sender: FDA-Public Use
  Company Number: US-ASTRAZENECA-2006UW21137

PATIENT
  Age: 50 Year
  Sex: Female
  Weight: 61.2 kg

DRUGS (3)
  1. CRESTOR [Suspect]
     Indication: BLOOD CHOLESTEROL INCREASED
     Route: 048
     Dates: end: 20061001
  2. CELEXA [Concomitant]
  3. CLONOPIN [Concomitant]

REACTIONS (1)
  - DRY MOUTH [None]
